FAERS Safety Report 11106638 (Version 1)
Quarter: 2015Q2

REPORT INFORMATION
  Report Type: Spontaneous
  Country: IT (occurrence: None)
  Receive Date: 20150508
  Receipt Date: 20150508
  Transmission Date: 20150821
  Serious: Yes (Other)
  Sender: FDA-Public Use
  Company Number: IT-ZYDUS-007945

PATIENT
  Age: 33 Year
  Sex: Male

DRUGS (2)
  1. CLOZAPINE (CLOZAPINE) [Suspect]
     Active Substance: CLOZAPINE
     Indication: DELUSION
  2. BUPROPION (BUPROPION) [Suspect]
     Active Substance: BUPROPION
     Indication: MAJOR DEPRESSION
     Dosage: 1.0DAYS

REACTIONS (11)
  - Seizure [None]
  - Salivary hypersecretion [None]
  - Drooling [None]
  - Tachycardia [None]
  - Sedation [None]
  - Constipation [None]
  - Increased appetite [None]
  - Toxicity to various agents [None]
  - Hallucination, visual [None]
  - Hypotension [None]
  - Vision blurred [None]
